FAERS Safety Report 6190480-6 (Version None)
Quarter: 2009Q2

REPORT INFORMATION
  Report Type: 
  Country: None (occurrence: None)
  Receive Date: 20090513
  Receipt Date: 20090513
  Transmission Date: 20091009
  Serious: Yes (Hospitalization)
  Sender: FDA-Public Use
  Company Number: None

PATIENT
  Age: 34 Year
  Sex: Male
  Weight: 71.2 kg

DRUGS (3)
  1. TYGACIL [Suspect]
     Indication: PYREXIA
     Dosage: 100MG X 1, THEN 50MG Q12H IV
     Route: 042
     Dates: start: 20090226, end: 20090301
  2. TYGACIL [Suspect]
     Indication: RESPIRATORY TRACT INFECTION
     Dosage: 100MG X 1, THEN 50MG Q12H IV
     Route: 042
     Dates: start: 20090226, end: 20090301
  3. TYGACIL [Suspect]
     Indication: SINUSITIS
     Dosage: 100MG X 1, THEN 50MG Q12H IV
     Route: 042
     Dates: start: 20090226, end: 20090301

REACTIONS (1)
  - PANCREATITIS [None]
